FAERS Safety Report 4711668-4 (Version None)
Quarter: 2005Q2

REPORT INFORMATION
  Report Type: 
  Country: None (occurrence: None)
  Receive Date: 20050629
  Receipt Date: 20050401
  Transmission Date: 20051028
  Serious: No
  Sender: FDA-Public Use
  Company Number: 05P-163-0295997-00

PATIENT
  Age: 47 Year
  Sex: Female
  Weight: 68.0396 kg

DRUGS (13)
  1. HUMIRA [Suspect]
     Indication: RHEUMATOID ARTHRITIS
     Dosage: 40 MG, 1 IN 2 WK, SUBCUTANEOUS
     Route: 058
     Dates: start: 20030101
  2. NOVOLOG [Concomitant]
  3. IBUPROFEN [Concomitant]
  4. MYOPLEX [Concomitant]
  5. AMITRIPTYLINE HCL [Concomitant]
  6. LEFLUNOMIDE [Concomitant]
  7. ALPRAZOLAM [Concomitant]
  8. ASPIRIN [Concomitant]
  9. ATORVASTATIN CALCIUM [Concomitant]
  10. RAMIPRIL [Concomitant]
  11. AMLODIPINE BESYLATE [Concomitant]
  12. HYDROCHLOROTHIAZIDE [Concomitant]
  13. VICODIN [Concomitant]

REACTIONS (4)
  - ERYTHEMA [None]
  - HEADACHE [None]
  - NECK PAIN [None]
  - PRURITUS [None]
